FAERS Safety Report 19369728 (Version 6)
Quarter: 2022Q3

REPORT INFORMATION
  Report Type: Report from Study
  Country: ES (occurrence: ES)
  Receive Date: 20210603
  Receipt Date: 20220929
  Transmission Date: 20221027
  Serious: No
  Sender: FDA-Public Use
  Company Number: ES-EXELIXIS-XL18421040902

PATIENT
  Age: 58 Year
  Sex: Male
  Weight: 70.8 kg

DRUGS (20)
  1. CABOZANTINIB [Suspect]
     Active Substance: CABOZANTINIB
     Indication: Renal cell carcinoma
     Dosage: 40 MG, QD
     Route: 048
     Dates: start: 20210310, end: 20210527
  2. CABOZANTINIB [Suspect]
     Active Substance: CABOZANTINIB
     Dosage: 40 MG, QD
     Route: 048
     Dates: start: 20210802
  3. IPILIMUMAB [Suspect]
     Active Substance: IPILIMUMAB
     Indication: Renal cell carcinoma
     Dosage: 1 MG/KG, Q3WEEKS, 4 DOSES
     Route: 042
     Dates: start: 20210310
  4. NIVOLUMAB [Suspect]
     Active Substance: NIVOLUMAB
     Indication: Renal cell carcinoma
     Dosage: 3 MG/KG, Q3WEEKS, 4 DOSES
     Route: 042
     Dates: start: 20210310
  5. NIVOLUMAB [Suspect]
     Active Substance: NIVOLUMAB
     Dosage: UNK
     Dates: start: 20210802
  6. MICARDIS [Concomitant]
     Active Substance: TELMISARTAN
  7. HEPARIN [Concomitant]
     Active Substance: HEPARIN SODIUM
  8. INSULIN NOS [Concomitant]
     Active Substance: INSULIN NOS
  9. DAPAGLIFLOZIN [Concomitant]
     Active Substance: DAPAGLIFLOZIN
  10. PREDNISONE [Concomitant]
     Active Substance: PREDNISONE
  11. DEXAMETHASONE [Concomitant]
     Active Substance: DEXAMETHASONE
  12. BISOPROLOL [Concomitant]
     Active Substance: BISOPROLOL
  13. VERAPAMIL [Concomitant]
     Active Substance: VERAPAMIL HYDROCHLORIDE
  14. DIGOXIN [Concomitant]
     Active Substance: DIGOXIN
  15. PROPRANOLOL [Concomitant]
     Active Substance: PROPRANOLOL HYDROCHLORIDE
  16. DAPAGLIFLOZIN [Concomitant]
     Active Substance: DAPAGLIFLOZIN
  17. OMEPRAZOLE [Concomitant]
     Active Substance: OMEPRAZOLE
  18. Telmisartan + HCT Genoptim [Concomitant]
  19. UNSPECIFIED INGREDIENT [Concomitant]
     Active Substance: UNSPECIFIED INGREDIENT
  20. HYALURONIC ACID [Concomitant]
     Active Substance: HYALURONIC ACID

REACTIONS (2)
  - Hyperthyroidism [Recovered/Resolved]
  - Aspartate aminotransferase increased [Recovered/Resolved]

NARRATIVE: CASE EVENT DATE: 20210503
